FAERS Safety Report 25931239 (Version 1)
Quarter: 2025Q4

REPORT INFORMATION
  Report Type: Spontaneous
  Country: EU (occurrence: EU)
  Receive Date: 20251016
  Receipt Date: 20251016
  Transmission Date: 20260118
  Serious: Yes (Other)
  Sender: NOVARTIS
  Company Number: None

PATIENT
  Age: 76 Year
  Sex: Female
  Weight: 74 kg

DRUGS (1)
  1. TEGRETOL [Suspect]
     Active Substance: CARBAMAZEPINE
     Indication: Bipolar disorder
     Dosage: 2 DOSAGE FORM, QD
     Route: 048
     Dates: start: 20250916, end: 20250921

REACTIONS (1)
  - Gait disturbance [Recovered/Resolved]

NARRATIVE: CASE EVENT DATE: 20250920
